FAERS Safety Report 16975278 (Version 1)
Quarter: 2019Q4

REPORT INFORMATION
  Report Type: Spontaneous
  Country: US (occurrence: US)
  Receive Date: 20190913
  Receipt Date: 20190913
  Transmission Date: 20200122
  Serious: No
  Sender: FDA-Public Use
  Company Number: None

PATIENT
  Age: 66 Year
  Sex: Female

DRUGS (1)
  1. VIZIMPRO [Suspect]
     Active Substance: DACOMITINIB
     Indication: LUNG NEOPLASM MALIGNANT
     Route: 048
     Dates: start: 201908

REACTIONS (5)
  - Bone pain [None]
  - Dry skin [None]
  - Eye discharge [None]
  - Pain [None]
  - Dry eye [None]

NARRATIVE: CASE EVENT DATE: 20190906
